FAERS Safety Report 10420018 (Version 1)
Quarter: 2014Q3

REPORT INFORMATION
  Report Type: Spontaneous
  Country: US (occurrence: US)
  Receive Date: 20140829
  Receipt Date: 20140829
  Transmission Date: 20150326
  Serious: Yes (Other)
  Sender: FDA-Public Use
  Company Number: US-TEVA-505631USA

PATIENT
  Age: 32 Year
  Sex: Female

DRUGS (2)
  1. IFOSFAMIDE W/MESNA [Suspect]
     Active Substance: IFOSFAMIDE\MESNA
     Indication: SYNOVIAL SARCOMA
     Route: 065
  2. DOXORUBICIN [Suspect]
     Active Substance: DOXORUBICIN
     Indication: SYNOVIAL SARCOMA
     Route: 065

REACTIONS (4)
  - Basedow^s disease [Recovered/Resolved]
  - Neutrophil count decreased [Unknown]
  - Leukopenia [Unknown]
  - Thrombocytopenia [Unknown]
